FAERS Safety Report 8886055 (Version 1)
Quarter: 2012Q4

REPORT INFORMATION
  Report Type: 
  Country: US (occurrence: US)
  Receive Date: 20121105
  Receipt Date: 20121105
  Transmission Date: 20130627
  Serious: Yes (Disabling, Other)
  Sender: FDA-Public Use
  Company Number: US-009507513-1210USA014629

PATIENT

DRUGS (2)
  1. FOSAMAX [Suspect]
     Route: 048
  2. FOSAMAX [Suspect]
     Dosage: UNK
     Route: 048
     Dates: start: 200803

REACTIONS (2)
  - Jaw disorder [Unknown]
  - Osteonecrosis of jaw [Unknown]
